FAERS Safety Report 5195848-2 (Version None)
Quarter: 2006Q4

REPORT INFORMATION
  Report Type: 
  Country: None (occurrence: None)
  Receive Date: 20061227
  Receipt Date: 20061212
  Transmission Date: 20070319
  Serious: Yes (Life-Threatening, Hospitalization)
  Sender: FDA-Public Use
  Company Number: 228530

PATIENT
  Age: 87 Year
  Sex: Male

DRUGS (9)
  1. RANIBIZUMAB(RANIBIZUMAB) PWDR + SOLVENT, INJECTION SOLN [Suspect]
     Indication: MACULAR DEGENERATION
     Dates: start: 20051122, end: 20060718
  2. DIGITOR [Concomitant]
  3. ISOSORBIDE (ISOSORBIDE NOS) [Concomitant]
  4. LIPITOR [Concomitant]
  5. METOPROLOL (METFORMIN TARTRATE) [Concomitant]
  6. OPTGEN (GENTAMICIN SULFATE) [Concomitant]
  7. PLAVIX [Concomitant]
  8. TERAZOSIN HCL [Concomitant]
  9. TRICOR [Concomitant]

REACTIONS (3)
  - DIALYSIS [None]
  - MYOCARDIAL INFARCTION [None]
  - SEPTIC SHOCK [None]
